FAERS Safety Report 19255824 (Version 2)
Quarter: 2021Q2

REPORT INFORMATION
  Report Type: Spontaneous
  Country: CZ (occurrence: CZ)
  Receive Date: 20210513
  Receipt Date: 20210519
  Transmission Date: 20210717
  Serious: No
  Sender: FDA-Public Use
  Company Number: CZ-ROCHE-2829645

PATIENT
  Age: 32 Year

DRUGS (2)
  1. TYSABRI [Concomitant]
     Active Substance: NATALIZUMAB
  2. OCREVUS [Suspect]
     Active Substance: OCRELIZUMAB
     Indication: RHEUMATOID ARTHRITIS
     Dosage: ON 6/3/2020 RECEIVED LAST INFUSION, INITIAL DOSE OF 600 MG IS ADMINISTERED AS TWO SEPARATE INTRAVENO
     Route: 042
     Dates: start: 20181119

REACTIONS (1)
  - COVID-19 [Unknown]

NARRATIVE: CASE EVENT DATE: 20200929
